FAERS Safety Report 5085629-2 (Version None)
Quarter: 2006Q3

REPORT INFORMATION
  Report Type: 
  Country: None (occurrence: None)
  Receive Date: 20060822
  Receipt Date: 20060406
  Transmission Date: 20061208
  Serious: No
  Sender: FDA-Public Use
  Company Number: US-BRISTOL-MYERS SQUIBB COMPANY-13339403

PATIENT
  Age: 25 Year
  Sex: Female
  Weight: 82 kg

DRUGS (3)
  1. BLENOXANE [Suspect]
     Indication: HODGKIN'S DISEASE
     Route: 042
     Dates: start: 20031106, end: 20040510
  2. DECADRON [Concomitant]
     Route: 042
  3. KYTRIL [Concomitant]
     Route: 042

REACTIONS (1)
  - DERMOGRAPHISM [None]
